FAERS Safety Report 7319365-6 (Version None)
Quarter: 2011Q1

REPORT INFORMATION
  Report Type: 
  Country: None (occurrence: None)
  Receive Date: 20110228
  Receipt Date: 20100218
  Transmission Date: 20110831
  Serious: Yes (Other)
  Sender: FDA-Public Use
  Company Number: A0845200A

PATIENT
  Age: 45 Year
  Sex: Female

DRUGS (4)
  1. LAMOTRIGINE [Suspect]
     Dosage: 200MG TWICE PER DAY
     Route: 048
     Dates: start: 20090101
  2. LAMICTAL [Suspect]
     Dosage: 200MG TWICE PER DAY
     Route: 048
  3. XANAX [Concomitant]
  4. PRIMIDONE [Concomitant]

REACTIONS (2)
  - FEELING ABNORMAL [None]
  - CONVULSION [None]
